FAERS Safety Report 7190113-6 (Version None)
Quarter: 2010Q4

REPORT INFORMATION
  Report Type: 
  Country: None (occurrence: None)
  Receive Date: 20101223
  Receipt Date: 20101215
  Transmission Date: 20110411
  Serious: Yes (Hospitalization, Other)
  Sender: FDA-Public Use
  Company Number: JP-PFIZER INC-2010157246

PATIENT
  Age: 75 Year
  Sex: Female

DRUGS (9)
  1. ALDACTONE [Suspect]
     Indication: CARDIAC FAILURE
     Dosage: 25 MG, 1X/DAY
     Route: 048
     Dates: end: 20101119
  2. WARFARIN [Suspect]
     Indication: ATRIAL FIBRILLATION
     Dosage: 4.5 MG, 1X/DAY
     Route: 048
     Dates: start: 19930101, end: 20101028
  3. WARFARIN [Suspect]
     Dosage: 4.5 MG, 1X/DAY
     Route: 048
     Dates: start: 20101105, end: 20101119
  4. ASPARTATE CALCIUM [Concomitant]
     Indication: OSTEOPOROSIS
     Dosage: 200 MG, 2X/DAY
     Route: 048
     Dates: end: 20101119
  5. ONE-ALPHA [Concomitant]
     Indication: OSTEOPOROSIS
     Dosage: 0.25 UG, 2X/DAY
     Route: 048
     Dates: end: 20101119
  6. MAGNESIUM OXIDE [Concomitant]
     Indication: CONSTIPATION
     Dosage: 330 MG, 2X/DAY
     Route: 048
  7. TERNELIN [Concomitant]
     Dosage: 1 MG, 2X/DAY
     Route: 048
     Dates: end: 20101119
  8. FUROSEMIDE [Concomitant]
     Indication: HEPATIC CIRRHOSIS
     Dosage: 10 MG, 1X/DAY
     Route: 048
     Dates: end: 20101119
  9. DIGOSIN [Concomitant]
     Indication: ATRIAL FIBRILLATION
     Dosage: 0.063 MG, 1X/DAY
     Route: 048
     Dates: end: 20101119

REACTIONS (1)
  - PLATELET COUNT DECREASED [None]
